FAERS Safety Report 7551347-1 (Version None)
Quarter: 2011Q2

REPORT INFORMATION
  Report Type: 
  Country: None (occurrence: None)
  Receive Date: 20110616
  Receipt Date: 20110615
  Transmission Date: 20111010
  Serious: Yes (Other)
  Sender: FDA-Public Use
  Company Number: TR-PFIZER INC-2011131001

PATIENT
  Age: 72 Year
  Sex: Female
  Weight: 78 kg

DRUGS (5)
  1. LYRICA [Suspect]
     Indication: BURNING SENSATION
     Dosage: 75 MG, 2X/DAY
     Route: 048
     Dates: end: 20110101
  2. BETAHISTINE HYDROCHLORIDE [Concomitant]
     Dosage: UNK
     Route: 048
  3. DIDERAL [Concomitant]
     Dosage: 1.5 X1
     Route: 048
  4. DIOVAN HCT [Concomitant]
     Dosage: 160/12.5
     Route: 048
  5. PLAVIX [Concomitant]
     Dosage: UNK
     Route: 048

REACTIONS (4)
  - RED BLOOD CELL SEDIMENTATION RATE INCREASED [None]
  - HYPERKALAEMIA [None]
  - ERYTHEMA [None]
  - OEDEMA PERIPHERAL [None]
